FAERS Safety Report 16359578 (Version 2)
Quarter: 2019Q2

REPORT INFORMATION
  Report Type: Spontaneous
  Country: US (occurrence: US)
  Receive Date: 20190528
  Receipt Date: 20190620
  Transmission Date: 20190711
  Serious: Yes (Hospitalization, Other)
  Sender: FDA-Public Use
  Company Number: US-ROCHE-2324980

PATIENT
  Age: 70 Year
  Sex: Male

DRUGS (8)
  1. ESBRIET [Suspect]
     Active Substance: PIRFENIDONE
     Indication: IDIOPATHIC PULMONARY FIBROSIS
     Route: 048
     Dates: start: 20180717
  2. ALLOPURINOL. [Concomitant]
     Active Substance: ALLOPURINOL
  3. PREDNISONE. [Concomitant]
     Active Substance: PREDNISONE
     Route: 065
  4. ESBRIET [Suspect]
     Active Substance: PIRFENIDONE
     Dosage: 3 TABLET; ONGOING: YES
     Route: 048
     Dates: start: 20170422
  5. OMEPRAZOLE. [Concomitant]
     Active Substance: OMEPRAZOLE
  6. ATENOLOL. [Concomitant]
     Active Substance: ATENOLOL
  7. ATORVASTATIN [Concomitant]
     Active Substance: ATORVASTATIN
  8. LORAZEPAM. [Concomitant]
     Active Substance: LORAZEPAM

REACTIONS (3)
  - Dementia [Unknown]
  - Aggression [Unknown]
  - Pulmonary embolism [Unknown]

NARRATIVE: CASE EVENT DATE: 20190520
